FAERS Safety Report 8149839 (Version 3)
Quarter: 2012Q4

REPORT INFORMATION
  Report Type: 
  Country: US (occurrence: US)
  Receive Date: 20110922
  Receipt Date: 20121017
  Transmission Date: 20130627
  Serious: Yes (Hospitalization, Other)
  Sender: FDA-Public Use
  Company Number: US-ASTRAZENECA-2011SE31949

PATIENT
  Age: 50 Year
  Sex: Female
  Weight: 129.3 kg

DRUGS (4)
  1. SEROQUEL [Suspect]
     Indication: BIPOLAR DISORDER
     Route: 048
  2. SEROQUEL [Suspect]
     Indication: SLEEP DISORDER
     Route: 048
  3. SEROQUEL [Suspect]
     Indication: BIPOLAR DISORDER
     Route: 048
  4. SEROQUEL [Suspect]
     Indication: SLEEP DISORDER
     Route: 048

REACTIONS (7)
  - Lung abscess [Unknown]
  - Lung cyst [Unknown]
  - Pneumonia [Unknown]
  - Insomnia [Unknown]
  - Malaise [Unknown]
  - Candidiasis [Unknown]
  - Drug dose omission [Unknown]
